FAERS Safety Report 21129199 (Version 3)
Quarter: 2022Q3

REPORT INFORMATION
  Report Type: Report from Study
  Country: US (occurrence: US)
  Receive Date: 20220725
  Receipt Date: 20220825
  Transmission Date: 20221026
  Serious: Yes (Other)
  Sender: FDA-Public Use
  Company Number: US-BIOGEN-2022BI01141296

PATIENT
  Sex: Male
  Weight: 70.824 kg

DRUGS (8)
  1. ADUHELM [Suspect]
     Active Substance: ADUCANUMAB-AVWA
     Indication: Dementia Alzheimer^s type
     Dosage: INFUSION 1
     Route: 050
     Dates: start: 20220118
  2. ADUHELM [Suspect]
     Active Substance: ADUCANUMAB-AVWA
     Dosage: INFUSION 2
     Route: 050
     Dates: start: 20220215
  3. ADUHELM [Suspect]
     Active Substance: ADUCANUMAB-AVWA
     Dosage: INFUSION 3
     Route: 050
     Dates: start: 20220315
  4. ADUHELM [Suspect]
     Active Substance: ADUCANUMAB-AVWA
     Dosage: INFUSION 4
     Route: 050
     Dates: start: 20220415
  5. ADUHELM [Suspect]
     Active Substance: ADUCANUMAB-AVWA
     Dosage: INFUSION 5
     Route: 050
     Dates: start: 20220513
  6. ADUHELM [Suspect]
     Active Substance: ADUCANUMAB-AVWA
     Dosage: INFUSION 6
     Route: 050
     Dates: start: 20220613
  7. DONEPEZIL HYDROCHLORIDE [Concomitant]
     Active Substance: DONEPEZIL HYDROCHLORIDE
     Indication: Product used for unknown indication
     Route: 050
  8. MEMANTINE HYDROCHLORIDE [Concomitant]
     Active Substance: MEMANTINE HYDROCHLORIDE
     Indication: Product used for unknown indication
     Route: 050

REACTIONS (4)
  - Subarachnoid haemorrhage [Unknown]
  - Superficial siderosis of central nervous system [Unknown]
  - Amyloid related imaging abnormality-oedema/effusion [Unknown]
  - Dementia [Unknown]

NARRATIVE: CASE EVENT DATE: 20220101
